FAERS Safety Report 5825759-8 (Version None)
Quarter: 2008Q3

REPORT INFORMATION
  Report Type: 
  Country: None (occurrence: None)
  Receive Date: 20080723
  Receipt Date: 20080710
  Transmission Date: 20090109
  Serious: Yes (Other)
  Sender: FDA-Public Use
  Company Number: DSA_32110_2008

PATIENT
  Sex: Female
  Weight: 93.441 kg

DRUGS (5)
  1. DILTIAZEM [Suspect]
     Indication: ARRHYTHMIA
     Dosage: (120 MG QD)
     Dates: start: 20070101
  2. DIGOXIN [Concomitant]
  3. ALLEGRA [Concomitant]
  4. VITAMINS NOS [Concomitant]
  5. ATENOLOL [Concomitant]

REACTIONS (1)
  - CARPAL TUNNEL SYNDROME [None]
